FAERS Safety Report 16916312 (Version 1)
Quarter: 2019Q4

REPORT INFORMATION
  Report Type: Spontaneous
  Country: US (occurrence: US)
  Receive Date: 20191014
  Receipt Date: 20191014
  Transmission Date: 20200122
  Serious: Yes (Other)
  Sender: FDA-Public Use
  Company Number: US-AMERICAN REGENT INC-2019002222

PATIENT
  Age: 52 Year
  Sex: Male

DRUGS (6)
  1. AMINOCAPROIC ACID INJECTION, USP (9120-25) [Suspect]
     Active Substance: AMINOCAPROIC ACID
     Indication: HAEMOTHORAX
     Dosage: 2 DOSAGE FORM
     Route: 065
  2. DESMOPRESSIN ACETATE INJECTION, USP (0517-4310-01) [Suspect]
     Active Substance: DESMOPRESSIN ACETATE
     Indication: HAEMOTHORAX
     Dosage: 1 DOSAGE FORM
     Route: 065
  3. TICAGRELOR. [Concomitant]
     Active Substance: TICAGRELOR
     Indication: STENT PLACEMENT
     Route: 065
  4. ASPIRIN. [Concomitant]
     Active Substance: ASPIRIN
     Indication: STENT PLACEMENT
     Route: 065
  5. AMINOCAPROIC ACID INJECTION, USP (9120-25) [Suspect]
     Active Substance: AMINOCAPROIC ACID
     Indication: PERICARDIAL HAEMORRHAGE
  6. DESMOPRESSIN ACETATE INJECTION, USP ( [Suspect]
     Active Substance: DESMOPRESSIN ACETATE
     Indication: PERICARDIAL HAEMORRHAGE

REACTIONS (4)
  - Pericardial haemorrhage [Recovering/Resolving]
  - Off label use [Unknown]
  - Drug ineffective [Recovering/Resolving]
  - Haemothorax [Recovering/Resolving]
